FAERS Safety Report 6331232-3 (Version None)
Quarter: 2009Q3

REPORT INFORMATION
  Report Type: 
  Country: None (occurrence: None)
  Receive Date: 20090827
  Receipt Date: 20090824
  Transmission Date: 20100115
  Serious: Yes (Other)
  Sender: FDA-Public Use
  Company Number: GB-MERCK-0907GBR00056

PATIENT
  Age: 7 Year
  Sex: Male
  Weight: 21 kg

DRUGS (2)
  1. SINGULAIR [Suspect]
     Route: 065
     Dates: start: 20090630, end: 20090705
  2. ALBUTEROL [Concomitant]
     Route: 065
     Dates: start: 20060101

REACTIONS (7)
  - DYSPHAGIA [None]
  - DYSPNOEA [None]
  - EPISTAXIS [None]
  - MOOD SWINGS [None]
  - NIGHTMARE [None]
  - ORAL PAIN [None]
  - SUICIDAL IDEATION [None]
